FAERS Safety Report 4567922-2 (Version None)
Quarter: 2005Q1

REPORT INFORMATION
  Report Type: 
  Country: None (occurrence: None)
  Receive Date: 20050202
  Receipt Date: 20040115
  Transmission Date: 20050727
  Serious: No
  Sender: FDA-Public Use
  Company Number: US-GLAXOSMITHKLINE-A0493486A

PATIENT
  Age: 65 Year
  Sex: Female

DRUGS (1)
  1. NAVELBINE [Suspect]
     Indication: ILL-DEFINED DISORDER
     Route: 042
     Dates: start: 20031201

REACTIONS (1)
  - MIGRAINE WITH AURA [None]
